FAERS Safety Report 23182115 (Version 2)
Quarter: 2024Q1

REPORT INFORMATION
  Report Type: Spontaneous
  Country: US (occurrence: US)
  Receive Date: 20231114
  Receipt Date: 20240124
  Transmission Date: 20240410
  Serious: No
  Sender: FDA-Public Use
  Company Number: US-Calliditas-2023CAL01427

PATIENT
  Age: 38 Year
  Sex: Female
  Weight: 64.4 kg

DRUGS (1)
  1. TARPEYO [Suspect]
     Active Substance: BUDESONIDE
     Indication: IgA nephropathy
     Dosage: 16 MG (4 MG CAPSULES) ONCE DAILY
     Route: 048
     Dates: start: 20231013

REACTIONS (10)
  - Increased appetite [Unknown]
  - Weight increased [Unknown]
  - Anger [Unknown]
  - Renal pain [Unknown]
  - Fatigue [Unknown]
  - Sleep paralysis [Unknown]
  - Contusion [Unknown]
  - Arthralgia [Unknown]
  - Gait disturbance [Unknown]
  - Cushingoid [Unknown]
